FAERS Safety Report 7774721-7 (Version None)
Quarter: 2011Q3

REPORT INFORMATION
  Report Type: 
  Country: None (occurrence: None)
  Receive Date: 20110923
  Receipt Date: 20110919
  Transmission Date: 20111222
  Serious: Yes (Other)
  Sender: FDA-Public Use
  Company Number: BR-ROCHE-803586

PATIENT
  Sex: Female
  Weight: 54 kg

DRUGS (2)
  1. METHOTREXATE [Concomitant]
  2. TOCILIZUMAB [Suspect]
     Dosage: FREQUENCY: EVERY 28 DAYS
     Route: 042
     Dates: start: 20110715

REACTIONS (2)
  - GALLBLADDER DISORDER [None]
  - ILL-DEFINED DISORDER [None]
